FAERS Safety Report 25165444 (Version 1)
Quarter: 2025Q2

REPORT INFORMATION
  Report Type: Report from Study
  Country: IT (occurrence: IT)
  Receive Date: 20250407
  Receipt Date: 20250407
  Transmission Date: 20250717
  Serious: Yes (Death)
  Sender: CELLTRION
  Company Number: IT-CELLTRION INC.-2024IT004170

PATIENT

DRUGS (16)
  1. BEVACIZUMAB [Suspect]
     Active Substance: BEVACIZUMAB
     Indication: Hepatocellular carcinoma
     Route: 065
     Dates: start: 20230607
  2. ATEZOLIZUMAB [Suspect]
     Active Substance: ATEZOLIZUMAB
     Indication: Hepatocellular carcinoma
     Route: 041
     Dates: start: 20230607
  3. TENORMIN [Concomitant]
     Active Substance: ATENOLOL
  4. LEVOTHYROXINE [Concomitant]
     Active Substance: LEVOTHYROXINE
     Dates: start: 20230816
  5. LAMIVUDINE [Concomitant]
     Active Substance: LAMIVUDINE
     Dates: start: 20231003
  6. XARELTO [Concomitant]
     Active Substance: RIVAROXABAN
  7. TRULICITY [Concomitant]
     Active Substance: DULAGLUTIDE
     Dosage: ONCE A WEEK
  8. HYDROCHLOROTHIAZIDE\ZOFENOPRIL CALCIUM [Concomitant]
     Active Substance: HYDROCHLOROTHIAZIDE\ZOFENOPRIL CALCIUM
  9. SYNJARDY [Concomitant]
     Active Substance: EMPAGLIFLOZIN\METFORMIN HYDROCHLORIDE
  10. EZETIMIBE\ROSUVASTATIN ZINC [Concomitant]
     Active Substance: EZETIMIBE\ROSUVASTATIN ZINC
  11. LANSOPRAZOLE [Concomitant]
     Active Substance: LANSOPRAZOLE
  12. BASAGLAR [Concomitant]
     Active Substance: INSULIN GLARGINE
  13. PREDNISONE [Concomitant]
     Active Substance: PREDNISONE
     Dates: start: 20240302, end: 20240305
  14. PREDNISONE [Concomitant]
     Active Substance: PREDNISONE
     Dates: start: 20240522
  15. RIFAXIMIN [Concomitant]
     Active Substance: RIFAXIMIN
     Dates: start: 20240522
  16. YOVIS [Concomitant]
     Dates: start: 20240522

REACTIONS (3)
  - Death [Fatal]
  - Pruritus [Not Recovered/Not Resolved]
  - Intentional product use issue [Unknown]

NARRATIVE: CASE EVENT DATE: 20231220
